FAERS Safety Report 10176001 (Version 1)
Quarter: 2014Q2

REPORT INFORMATION
  Report Type: Spontaneous
  Country: ES (occurrence: ES)
  Receive Date: 20140516
  Receipt Date: 20140516
  Transmission Date: 20141212
  Serious: Yes (Other)
  Sender: FDA-Public Use
  Company Number: ES-JNJFOC-20140507553

PATIENT
  Sex: 0

DRUGS (1)
  1. ABCIXIMAB [Suspect]
     Indication: PERCUTANEOUS CORONARY INTERVENTION
     Route: 022

REACTIONS (2)
  - Cardiac tamponade [Recovered/Resolved]
  - Incorrect route of drug administration [Unknown]
